FAERS Safety Report 7375270-0 (Version None)
Quarter: 2011Q1

REPORT INFORMATION
  Report Type: 
  Country: None (occurrence: None)
  Receive Date: 20110325
  Receipt Date: 20110317
  Transmission Date: 20110831
  Serious: Yes (Death, Hospitalization)
  Sender: FDA-Public Use
  Company Number: US-ACTELION-A-US2011-46076

PATIENT

DRUGS (5)
  1. CALCIUM CHANNEL BLOCKERS [Concomitant]
  2. VELETRI [Suspect]
     Indication: PULMONARY ARTERIAL HYPERTENSION
     Dosage: 34 NG/KG, PER MIN
     Route: 042
     Dates: start: 20100908
  3. AMBRISENTAN [Concomitant]
  4. COUMADIN [Concomitant]
  5. CLINDAMYCIN [Concomitant]

REACTIONS (5)
  - CELLULITIS [None]
  - ERYTHEMA [None]
  - DYSPNOEA [None]
  - COLON CANCER METASTATIC [None]
  - CHILLS [None]
